FAERS Safety Report 6363203-5 (Version None)
Quarter: 2009Q3

REPORT INFORMATION
  Report Type: 
  Country: None (occurrence: None)
  Receive Date: 20090919
  Receipt Date: 20090624
  Transmission Date: 20100115
  Serious: No
  Sender: FDA-Public Use
  Company Number: US-ABBOTT-09P-163-0581840-00

PATIENT
  Sex: Male

DRUGS (1)
  1. HUMIRA [Suspect]
     Indication: PSORIATIC ARTHROPATHY
     Dates: start: 20090202, end: 20090603

REACTIONS (10)
  - BLOOD CREATININE INCREASED [None]
  - BLOOD UREA INCREASED [None]
  - DIZZINESS [None]
  - FATIGUE [None]
  - HAEMATOCRIT INCREASED [None]
  - HAEMOGLOBIN INCREASED [None]
  - HYPOTENSION [None]
  - MOBILITY DECREASED [None]
  - PAIN [None]
  - PSORIATIC ARTHROPATHY [None]
